FAERS Safety Report 5363489-X (Version None)
Quarter: 2007Q2

REPORT INFORMATION
  Report Type: 
  Country: None (occurrence: None)
  Receive Date: 20070618
  Receipt Date: 20070601
  Transmission Date: 20071010
  Serious: Yes (Death, Hospitalization)
  Sender: FDA-Public Use
  Company Number: FR-LLY-FR_050105604

PATIENT
  Age: 70 Year
  Sex: Male

DRUGS (1)
  1. CELANCE (PERGOLIDE MESILATE) [Suspect]
     Indication: PARKINSON'S DISEASE
     Dosage: 5 MG; QD; PO
     Route: 048
     Dates: start: 20000101, end: 20050101

REACTIONS (3)
  - AORTIC STENOSIS [None]
  - DYSPNOEA [None]
  - POST PROCEDURAL SEPSIS [None]
